FAERS Safety Report 17070574 (Version 1)
Quarter: 2019Q4

REPORT INFORMATION
  Report Type: Spontaneous
  Country: US (occurrence: US)
  Receive Date: 20191125
  Receipt Date: 20191125
  Transmission Date: 20200122
  Serious: Yes (Other)
  Sender: FDA-Public Use
  Company Number: US-PFIZER INC-2019504087

PATIENT
  Age: 34 Year
  Sex: Female

DRUGS (1)
  1. XELJANZ [Suspect]
     Active Substance: TOFACITINIB CITRATE
     Indication: COLITIS ULCERATIVE
     Dosage: 5 MG, TWO TIMES A DAY
     Route: 048
     Dates: start: 201904

REACTIONS (6)
  - Infection [Unknown]
  - Nausea [Unknown]
  - Vomiting [Unknown]
  - Product dose omission [Unknown]
  - Frequent bowel movements [Unknown]
  - Diarrhoea haemorrhagic [Unknown]
